FAERS Safety Report 12205979 (Version 2)
Quarter: 2016Q2

REPORT INFORMATION
  Report Type: Spontaneous
  Country: US (occurrence: US)
  Receive Date: 20160323
  Receipt Date: 20160524
  Transmission Date: 20160815
  Serious: Yes (Other)
  Sender: FDA-Public Use
  Company Number: US-BIOMARINAP-US-2015-108621

PATIENT
  Sex: Male

DRUGS (1)
  1. ALDURAZYME [Suspect]
     Active Substance: LARONIDASE
     Indication: MUCOPOLYSACCHARIDOSIS I
     Dosage: UNK
     Route: 041
     Dates: start: 20130916

REACTIONS (8)
  - Middle ear effusion [Unknown]
  - Malaise [Unknown]
  - Pneumonia [Recovered/Resolved]
  - Tympanic membrane disorder [Unknown]
  - Pyrexia [Unknown]
  - Dehydration [Unknown]
  - Ear infection [Recovered/Resolved]
  - Viral infection [Unknown]

NARRATIVE: CASE EVENT DATE: 2016
